FAERS Safety Report 10339498 (Version 2)
Quarter: 2014Q3

REPORT INFORMATION
  Report Type: Report from Study
  Country: CA (occurrence: CA)
  Receive Date: 20140724
  Receipt Date: 20140908
  Transmission Date: 20150326
  Serious: Yes (Hospitalization, Other)
  Sender: FDA-Public Use
  Company Number: CA-GILEAD-2014-0109520

PATIENT
  Age: 49 Year
  Sex: Female

DRUGS (1)
  1. TENOFOVIR DISOPROXIL FUMARATE [Suspect]
     Active Substance: TENOFOVIR DISOPROXIL FUMARATE
     Indication: HEPATITIS B
     Dosage: 300 MG, UNK
     Route: 048

REACTIONS (7)
  - Investigation [Unknown]
  - Dyspnoea [Unknown]
  - Aphagia [Unknown]
  - Speech disorder [Unknown]
  - Malaise [Unknown]
  - Palpitations [Unknown]
  - Weight decreased [Unknown]

NARRATIVE: CASE EVENT DATE: 201307
